FAERS Safety Report 8043114-X (Version None)
Quarter: 2012Q1

REPORT INFORMATION
  Report Type: 
  Country: None (occurrence: None)
  Receive Date: 20120112
  Receipt Date: 20120106
  Transmission Date: 20120608
  Serious: Yes (Hospitalization)
  Sender: FDA-Public Use
  Company Number: SI-BAYER-2012-001724

PATIENT
  Age: 70 Year

DRUGS (6)
  1. WARFARIN SODIUM [Concomitant]
     Dosage: ACCORDING TO INR VALUES
     Route: 048
  2. PERINDOPRIL [Concomitant]
  3. EDEMID [Concomitant]
     Dosage: 1/2 TBL. EVERY SECOND DAY
     Route: 048
  4. AVELOX [Suspect]
     Dosage: 400 MG, HS
     Route: 048
     Dates: start: 20111204, end: 20111211
  5. BISOPROLOL FUMARATE [Concomitant]
  6. LANITOP [Concomitant]
     Route: 048

REACTIONS (2)
  - JAUNDICE [None]
  - HEPATITIS CHOLESTATIC [None]
